FAERS Safety Report 14739863 (Version 1)
Quarter: 2018Q2

REPORT INFORMATION
  Report Type: Spontaneous
  Country: FR (occurrence: FR)
  Receive Date: 20180410
  Receipt Date: 20180410
  Transmission Date: 20180711
  Serious: Yes (Other)
  Sender: FDA-Public Use
  Company Number: FR-MERCK KGAA-2045439

PATIENT
  Age: 29 Year
  Sex: Male

DRUGS (1)
  1. NOVOTHYROX [Suspect]
     Active Substance: LEVOTHYROXINE SODIUM
     Indication: PRODUCT USED FOR UNKNOWN INDICATION

REACTIONS (25)
  - Disturbance in attention [None]
  - Depression [None]
  - Feeling cold [None]
  - Suicidal ideation [None]
  - Arthralgia [None]
  - Asthenia [None]
  - Fatigue [None]
  - Vertigo [None]
  - Social avoidant behaviour [None]
  - Anti-thyroid antibody positive [None]
  - Stress [None]
  - Alopecia [None]
  - Temperature regulation disorder [None]
  - Clumsiness [None]
  - Loss of personal independence in daily activities [None]
  - Memory impairment [None]
  - Weight decreased [None]
  - Abnormal behaviour [None]
  - Anti-thyroid antibody positive [None]
  - Headache [None]
  - Sleep disorder [None]
  - Decreased appetite [None]
  - Impaired work ability [None]
  - Abdominal pain upper [None]
  - Aphasia [None]

NARRATIVE: CASE EVENT DATE: 20170316
